FAERS Safety Report 25541972 (Version 3)
Quarter: 2025Q4

REPORT INFORMATION
  Report Type: Spontaneous
  Country: CA (occurrence: CA)
  Receive Date: 20250711
  Receipt Date: 20251105
  Transmission Date: 20260117
  Serious: Yes (Hospitalization, Other)
  Sender: CELLTRION
  Company Number: CA-CELLTRION INC.-2025CA022060

PATIENT

DRUGS (3)
  1. INFLIXIMAB [Suspect]
     Active Substance: INFLIXIMAB
     Indication: Colitis ulcerative
     Dosage: MAINTENANCE 120 MG EVERY 2 WEEKS
     Route: 058
     Dates: start: 20250310
  2. INFLIXIMAB [Suspect]
     Active Substance: INFLIXIMAB
     Dosage: MAINTENANCE - 120 MG - SC (SUBCUTANEOUS) EVERY 1 WEEKS
     Route: 058
     Dates: start: 20250714
  3. INFLIXIMAB [Suspect]
     Active Substance: INFLIXIMAB
     Dosage: MAINTENANCE - 120 MG - SC (SUBCUTANEOUS) EVERY 1 WEEKS
     Route: 058
     Dates: start: 20250310

REACTIONS (4)
  - Colitis ulcerative [Unknown]
  - General physical health deterioration [Unknown]
  - Therapy non-responder [Unknown]
  - Intentional product use issue [Unknown]

NARRATIVE: CASE EVENT DATE: 20250601
